FAERS Safety Report 5448816-7 (Version None)
Quarter: 2007Q3

REPORT INFORMATION
  Report Type: 
  Country: None (occurrence: None)
  Receive Date: 20070911
  Receipt Date: 20070731
  Transmission Date: 20080115
  Serious: Yes (Hospitalization)
  Sender: FDA-Public Use
  Company Number: US-BRISTOL-MYERS SQUIBB COMPANY-13827035

PATIENT
  Age: 25 Year
  Sex: Female

DRUGS (4)
  1. EMSAM [Suspect]
     Indication: AFFECTIVE DISORDER
     Dosage: DOSE REDUCED TO 9MG-26-JUN-07;6MG ON 27-JUN-07.DRUG WITHDRAWN FROM 28-JUN-2007 TO 16-JUL-2007.
     Route: 062
     Dates: start: 20070619, end: 20070101
  2. DEPAKOTE [Concomitant]
     Dosage: RESTARTED ON 19-JUN -2007.
     Route: 048
     Dates: start: 20070522
  3. XANAX [Concomitant]
     Route: 048
  4. LAMICTAL [Concomitant]
     Dosage: 25 MG TITRATING DOSING
     Dates: start: 20070620

REACTIONS (1)
  - RECTAL HAEMORRHAGE [None]
